FAERS Safety Report 13176946 (Version 1)
Quarter: 2017Q1

REPORT INFORMATION
  Report Type: Spontaneous
  Country: AT (occurrence: AT)
  Receive Date: 20170201
  Receipt Date: 20170201
  Transmission Date: 20170428
  Serious: Yes (Hospitalization)
  Sender: FDA-Public Use
  Company Number: AT-ABBVIE-17P-009-1855466-00

PATIENT
  Age: 90 Year
  Sex: Female

DRUGS (3)
  1. VIEKIRAX [Suspect]
     Active Substance: OMBITASVIR\PARITAPREVIR\RITONAVIR
     Indication: CHRONIC HEPATITIS C
     Route: 048
     Dates: start: 20161003
  2. FENTANYL. [Concomitant]
     Active Substance: FENTANYL
     Indication: PRODUCT USED FOR UNKNOWN INDICATION
  3. EXVIERA [Suspect]
     Active Substance: DASABUVIR
     Indication: CHRONIC HEPATITIS C
     Route: 048
     Dates: start: 20161003

REACTIONS (9)
  - Yellow skin [Unknown]
  - Pain [Unknown]
  - Ammonia decreased [Unknown]
  - Asthenia [Unknown]
  - Stasis dermatitis [Unknown]
  - Injury [Unknown]
  - Somnolence [Recovered/Resolved]
  - Disorientation [Unknown]
  - Transaminases increased [Unknown]

NARRATIVE: CASE EVENT DATE: 20161109
